FAERS Safety Report 8177676-9 (Version None)
Quarter: 2012Q1

REPORT INFORMATION
  Report Type: 
  Country: None (occurrence: None)
  Receive Date: 20120301
  Receipt Date: 20120224
  Transmission Date: 20120608
  Serious: Yes (Life-Threatening)
  Sender: FDA-Public Use
  Company Number: PHHY2008JP01207

PATIENT
  Sex: Male

DRUGS (4)
  1. GLEEVEC [Suspect]
     Indication: GASTROINTESTINAL STROMAL TUMOUR
     Dosage: 400 MG, DAILY
     Route: 048
     Dates: start: 20051001, end: 20060127
  2. GLEEVEC [Suspect]
     Dosage: 400 MG, DAILY
     Route: 048
     Dates: start: 20090209, end: 20091126
  3. GLEEVEC [Suspect]
     Dosage: 400 MG,DAILY
     Route: 048
     Dates: start: 20060207, end: 20061004
  4. GLEEVEC [Suspect]
     Dosage: 400 MG, DAILY
     Route: 048
     Dates: start: 20071121, end: 20090129

REACTIONS (2)
  - NEOPLASM MALIGNANT [None]
  - RENAL CELL CARCINOMA [None]
